FAERS Safety Report 9450718 (Version 1)
Quarter: 2013Q3

REPORT INFORMATION
  Report Type: Spontaneous
  Country: GB (occurrence: None)
  Receive Date: 20130807
  Receipt Date: 20130807
  Transmission Date: 20140515
  Serious: Yes (Hospitalization, Other)
  Sender: FDA-Public Use
  Company Number: SYM-2013-07620

PATIENT
  Age: 45 Year
  Sex: Male

DRUGS (4)
  1. METRONIDAZOLE [Suspect]
     Indication: INFECTION
     Dosage: 3 IN 1 D
     Route: 048
     Dates: start: 20130703, end: 20130704
  2. RAMIPRIL (RAMIPRIL) (RAMIPRIL) [Concomitant]
  3. AMLODIPINE (AMLODIPINE) (AMLODIPINE) [Concomitant]
  4. VENTOLIN (SALBUTAMOL) (SALBUTAMOL) [Concomitant]

REACTIONS (3)
  - Urticaria [None]
  - Pruritus [None]
  - Throat tightness [None]
